FAERS Safety Report 5025908-8 (Version None)
Quarter: 2006Q2

REPORT INFORMATION
  Report Type: 
  Country: None (occurrence: None)
  Receive Date: 20060614
  Receipt Date: 20050117
  Transmission Date: 20061013
  Serious: Yes (Other)
  Sender: FDA-Public Use
  Company Number: 2005-01-0367

PATIENT
  Age: 61 Year
  Sex: Male
  Weight: 100 kg

DRUGS (10)
  1. WELLBUTRIN [Suspect]
     Indication: DEPRESSION
     Dosage: 300MG TWICE PER DAY
     Route: 048
     Dates: start: 20041116
  2. INTRON A [Suspect]
     Indication: MALIGNANT MELANOMA STAGE III
     Dosage: 44MU SEE DOSAGE TEXT
     Route: 042
     Dates: start: 20041115, end: 20041221
  3. ALLOPURINOL [Suspect]
     Indication: GOUT
     Dosage: 100MG AT NIGHT
     Route: 048
  4. CLONAZEPAM [Suspect]
     Indication: DEPRESSION
     Dosage: .5MG AT NIGHT
     Route: 048
  5. TRAZODONE HCL [Suspect]
     Indication: DEPRESSION
     Dosage: 50MG AT NIGHT
     Route: 048
  6. ZOCOR [Suspect]
     Indication: BLOOD CHOLESTEROL INCREASED
     Dosage: 10MG PER DAY
     Route: 048
  7. REMERON [Suspect]
     Indication: DEPRESSION
     Dosage: 45MG AT NIGHT
     Route: 048
  8. MULTIVITAMIN [Suspect]
     Indication: DRUG USE FOR UNKNOWN INDICATION
     Route: 048
  9. GLUCOSAMINE [Suspect]
     Indication: DRUG USE FOR UNKNOWN INDICATION
     Route: 048
  10. COMPAZINE [Suspect]
     Indication: NAUSEA
     Dosage: 10MG AS REQUIRED
     Route: 048
     Dates: start: 20041115

REACTIONS (8)
  - ANOREXIA [None]
  - ASTHENIA [None]
  - CONFUSIONAL STATE [None]
  - DECREASED APPETITE [None]
  - DEHYDRATION [None]
  - DRUG INTERACTION [None]
  - ILL-DEFINED DISORDER [None]
  - LETHARGY [None]
